FAERS Safety Report 25096658 (Version 2)
Quarter: 2025Q2

REPORT INFORMATION
  Report Type: Report from Study
  Country: US (occurrence: US)
  Receive Date: 20250319
  Receipt Date: 20250402
  Transmission Date: 20250716
  Serious: Yes (Other)
  Sender: FERRING
  Company Number: US-FERRINGPH-2025FE01284

PATIENT

DRUGS (1)
  1. NADOFARAGENE FIRADENOVEC [Suspect]
     Active Substance: NADOFARAGENE FIRADENOVEC
     Indication: Product used for unknown indication
     Dosage: 75 ML, EVERY 3RD MONTH
     Route: 043
     Dates: start: 20241114

REACTIONS (1)
  - Recurrent cancer [Recovered/Resolved]
